FAERS Safety Report 9675708 (Version 3)
Quarter: 2014Q1

REPORT INFORMATION
  Report Type: Spontaneous
  Country: BE (occurrence: BE)
  Receive Date: 20131107
  Receipt Date: 20140106
  Transmission Date: 20141002
  Serious: Yes (Hospitalization, Other)
  Sender: FDA-Public Use
  Company Number: BE-CELGENEUS-013-21880-13104336

PATIENT
  Sex: Male

DRUGS (8)
  1. REVLIMID [Suspect]
     Indication: 5Q MINUS SYNDROME
     Dosage: 10 MILLIGRAM
     Route: 048
     Dates: start: 20130121, end: 20130726
  2. REVLIMID [Suspect]
     Route: 048
     Dates: end: 20130514
  3. UNI DIAMICRON [Concomitant]
     Indication: DIABETES MELLITUS
     Route: 048
     Dates: start: 2005
  4. INDERAL [Concomitant]
     Indication: PORTAL HYPERTENSION
     Route: 048
     Dates: start: 201205
  5. ALDACTONE [Concomitant]
     Indication: PORTAL HYPERTENSION
     Route: 048
     Dates: start: 201205
  6. FUROSEMIDE [Concomitant]
     Indication: PORTAL HYPERTENSION
     Route: 048
     Dates: start: 201205
  7. MEDROL [Concomitant]
     Indication: ANAEMIA
     Route: 048
     Dates: start: 201010
  8. IRON [Concomitant]
     Indication: PRODUCT USED FOR UNKNOWN INDICATION
     Route: 065

REACTIONS (1)
  - Hepatic cirrhosis [Not Recovered/Not Resolved]
